FAERS Safety Report 8777595 (Version 1)
Quarter: 2012Q4

REPORT INFORMATION
  Report Type: 
  Country: CA (occurrence: CA)
  Receive Date: 20120910
  Receipt Date: 20120910
  Transmission Date: 20130627
  Serious: Yes (Death, Other)
  Sender: FDA-Public Use
  Company Number: CA-CELGENEUS-028-20785-12090463

PATIENT
  Age: 84 Year
  Sex: Female

DRUGS (1)
  1. THALOMID [Suspect]
     Indication: MULTIPLE MYELOMA
     Dosage: 200 Milligram
     Route: 048
     Dates: start: 20120626, end: 20120822

REACTIONS (2)
  - Death [Fatal]
  - Gastrointestinal neoplasm [Unknown]
